FAERS Safety Report 7786518-2 (Version None)
Quarter: 2011Q3

REPORT INFORMATION
  Report Type: 
  Country: None (occurrence: None)
  Receive Date: 20110929
  Receipt Date: 20110927
  Transmission Date: 20111222
  Serious: Yes (Hospitalization)
  Sender: FDA-Public Use
  Company Number: US-GLAXOSMITHKLINE-A0893390A

PATIENT
  Sex: Female
  Weight: 151.8 kg

DRUGS (13)
  1. LOVASTATIN [Concomitant]
  2. AMLODIPINE [Concomitant]
  3. ASPIRIN [Concomitant]
  4. LIPITOR [Concomitant]
  5. AVANDIA [Suspect]
     Indication: DIABETES MELLITUS
     Dosage: 4MG PER DAY
     Route: 048
     Dates: start: 20000401, end: 20080901
  6. ACCOLATE [Concomitant]
  7. WELLBUTRIN [Concomitant]
  8. COZAAR [Concomitant]
  9. ADVAIR DISKUS 100/50 [Concomitant]
  10. COMBIVENT [Concomitant]
  11. LASIX [Concomitant]
  12. ALBUTEROL [Concomitant]
  13. POTASSIUM CHLORIDE [Concomitant]

REACTIONS (2)
  - CARDIAC VALVE DISEASE [None]
  - ATRIAL FIBRILLATION [None]
